FAERS Safety Report 6624015-8 (Version None)
Quarter: 2010Q1

REPORT INFORMATION
  Report Type: 
  Country: None (occurrence: None)
  Receive Date: 20100310
  Receipt Date: 20100303
  Transmission Date: 20100710
  Serious: Yes (Other)
  Sender: FDA-Public Use
  Company Number: AT-ROXANE LABORATORIES, INC.-2010-RO-00226RO

PATIENT
  Age: 67 Year
  Sex: Female

DRUGS (6)
  1. METHOTREXATE [Suspect]
     Indication: RHEUMATOID ARTHRITIS
  2. RITUXIMAB [Concomitant]
     Indication: B-CELL LYMPHOMA
  3. CYCLOPHOSPHAMIDE [Concomitant]
     Indication: B-CELL LYMPHOMA
  4. VINCRISTINE [Concomitant]
     Indication: B-CELL LYMPHOMA
  5. DOXIRUBICIN [Concomitant]
     Indication: B-CELL LYMPHOMA
  6. PREDNISONE [Concomitant]
     Indication: B-CELL LYMPHOMA

REACTIONS (2)
  - DIFFUSE LARGE B-CELL LYMPHOMA [None]
  - LEUKOCYTOCLASTIC VASCULITIS [None]
